FAERS Safety Report 9096169 (Version 1)
Quarter: 2013Q1

REPORT INFORMATION
  Report Type: Spontaneous
  Country: FR (occurrence: FR)
  Receive Date: 20130207
  Receipt Date: 20130207
  Transmission Date: 20140127
  Serious: Yes (Other)
  Sender: FDA-Public Use
  Company Number: FR-AMGEN-FRASP2012082359

PATIENT
  Age: 56 Year
  Sex: Female
  Weight: 55 kg

DRUGS (4)
  1. ENBREL [Suspect]
     Indication: PSORIATIC ARTHROPATHY
     Dosage: 50 MG, QWK
     Route: 058
     Dates: start: 201210
  2. VOLTARENE                          /00372302/ [Concomitant]
     Indication: PSORIATIC ARTHROPATHY
     Dosage: 75 MG, 2X/DAY
     Route: 048
     Dates: start: 2008
  3. SALAZOPYRINE [Concomitant]
     Indication: PSORIATIC ARTHROPATHY
     Dosage: 1000 MG, 2X/DAY
     Route: 048
     Dates: start: 2008
  4. LAMALINE                           /00764901/ [Concomitant]
     Indication: PSORIATIC ARTHROPATHY
     Dosage: 2 DF, 2X/DAY
     Route: 048
     Dates: start: 2010

REACTIONS (2)
  - Erythema migrans [Recovering/Resolving]
  - Lyme disease [Recovering/Resolving]
